FAERS Safety Report 5399130-X (Version None)
Quarter: 2007Q3

REPORT INFORMATION
  Report Type: 
  Country: None (occurrence: None)
  Receive Date: 20070727
  Receipt Date: 20070420
  Transmission Date: 20080115
  Serious: No
  Sender: FDA-Public Use
  Company Number: A0647959A

PATIENT
  Age: 67 Year
  Sex: Male

DRUGS (2)
  1. TAGAMET HB 200 [Suspect]
     Dates: start: 20070412
  2. FLAGYL [Concomitant]

REACTIONS (1)
  - DIARRHOEA [None]
